FAERS Safety Report 13993941 (Version 2)
Quarter: 2018Q2

REPORT INFORMATION
  Report Type: Spontaneous
  Country: FR (occurrence: FR)
  Receive Date: 20170916
  Receipt Date: 20180516
  Transmission Date: 20180711
  Serious: Yes (Other)
  Sender: FDA-Public Use
  Company Number: FR-MERCK KGAA-2026591

PATIENT
  Age: 63 Year
  Sex: Female
  Weight: 80 kg

DRUGS (1)
  1. NOVOTHYROX [Suspect]
     Active Substance: LEVOTHYROXINE SODIUM
     Indication: POST PROCEDURAL HYPOTHYROIDISM
     Route: 048
     Dates: start: 20170401

REACTIONS (18)
  - Diffuse alopecia [Not Recovered/Not Resolved]
  - Weight increased [Recovering/Resolving]
  - Muscle spasms [Recovering/Resolving]
  - Onychoclasis [None]
  - Irritability [None]
  - Body temperature decreased [None]
  - Vertigo [None]
  - Skin exfoliation [None]
  - Fatigue [None]
  - Hyperhidrosis [None]
  - Hot flush [None]
  - Dizziness [Not Recovered/Not Resolved]
  - Dry skin [None]
  - Depression [None]
  - Social avoidant behaviour [None]
  - Blood thyroid stimulating hormone increased [None]
  - Nervousness [Not Recovered/Not Resolved]
  - Insomnia [Recovering/Resolving]

NARRATIVE: CASE EVENT DATE: 20170501
